FAERS Safety Report 8256653-3 (Version None)
Quarter: 2012Q1

REPORT INFORMATION
  Report Type: 
  Country: None (occurrence: None)
  Receive Date: 20120322
  Receipt Date: 20120214
  Transmission Date: 20120608
  Serious: Yes (Hospitalization)
  Sender: FDA-Public Use
  Company Number: UTC-015588

PATIENT
  Age: 72 Year
  Sex: Female
  Weight: 109.1 kg

DRUGS (4)
  1. COUMADIN [Concomitant]
  2. LETAIRIS [Concomitant]
  3. DIURETICS (DIURETICS) [Concomitant]
  4. TYVASO [Suspect]
     Indication: COR PULMONALE CHRONIC
     Dosage: 162 MCG (54 MCG, 3 IN 1 D), INHALATION
     Route: 055
     Dates: start: 20091002

REACTIONS (3)
  - FLUID RETENTION [None]
  - ANAEMIA [None]
  - ATRIAL FIBRILLATION [None]
